FAERS Safety Report 8508094-9 (Version None)
Quarter: 2012Q2

REPORT INFORMATION
  Report Type: 
  Country: None (occurrence: None)
  Receive Date: 20120405
  Receipt Date: 20090810
  Transmission Date: 20120825
  Serious: Yes (Hospitalization)
  Sender: FDA-Public Use
  Company Number: PHEH2009US09092

PATIENT
  Age: 65 Year
  Sex: Female
  Weight: 68.9 kg

DRUGS (1)
  1. RECLAST [Suspect]
     Indication: OSTEOPOROSIS POSTMENOPAUSAL
     Dosage: 5 MG ONCE YEARLY, INTRAVENOUS
     Route: 042

REACTIONS (3)
  - MYALGIA [None]
  - BONE PAIN [None]
  - MUSCULOSKELETAL PAIN [None]
